FAERS Safety Report 5971421-0 (Version None)
Quarter: 2008Q4

REPORT INFORMATION
  Report Type: 
  Country: None (occurrence: None)
  Receive Date: 20081130
  Receipt Date: 20081120
  Transmission Date: 20090506
  Serious: Yes (Other)
  Sender: FDA-Public Use
  Company Number: DE-PFIZER INC-2008098905

PATIENT
  Sex: Female

DRUGS (1)
  1. SOBELIN [Suspect]
     Indication: TOOTH DISORDER
     Dates: start: 20070101

REACTIONS (1)
  - HEPATITIS [None]
